FAERS Safety Report 9844742 (Version 3)
Quarter: 2014Q1

REPORT INFORMATION
  Report Type: Report from Study
  Country: CA (occurrence: CA)
  Receive Date: 20140127
  Receipt Date: 20140310
  Transmission Date: 20141002
  Serious: Yes (Other)
  Sender: FDA-Public Use
  Company Number: CA-ROCHE-1191927

PATIENT
  Age: 24 Year
  Sex: Female
  Weight: 88 kg

DRUGS (11)
  1. RITUXAN [Suspect]
     Indication: RHEUMATOID ARTHRITIS
     Route: 042
     Dates: start: 20130207, end: 20130221
  2. ACTEMRA [Suspect]
     Indication: RHEUMATOID ARTHRITIS
     Route: 042
     Dates: start: 20130903, end: 20140102
  3. DIPHENHYDRAMINE HCL [Concomitant]
     Indication: PREMEDICATION
     Route: 048
     Dates: start: 20130207, end: 20130221
  4. ACETAMINOPHEN [Concomitant]
     Indication: PREMEDICATION
     Route: 048
     Dates: start: 20130207, end: 20130221
  5. METHYLPREDNISOLONE [Concomitant]
     Indication: PREMEDICATION
     Route: 042
     Dates: start: 20130207, end: 20130221
  6. PREDNISONE [Concomitant]
     Route: 065
  7. METHOTREXATE [Concomitant]
     Route: 048
  8. FOLIC ACID [Concomitant]
  9. ZOLOFT [Concomitant]
  10. LORAZEPAM [Concomitant]
  11. PERCOCET [Concomitant]
     Route: 065

REACTIONS (5)
  - Joint swelling [Not Recovered/Not Resolved]
  - Infusion related reaction [Recovered/Resolved]
  - Headache [Recovered/Resolved]
  - Weight increased [Unknown]
  - Drug ineffective [Unknown]
